FAERS Safety Report 5227615-5 (Version None)
Quarter: 2007Q1

REPORT INFORMATION
  Report Type: 
  Country: None (occurrence: None)
  Receive Date: 20061201
  Receipt Date: 20061017
  Transmission Date: 20070707
  Serious: No
  Sender: FDA-Public Use
  Company Number: US200610002973

PATIENT
  Sex: Female

DRUGS (2)
  1. CYMBALTA [Suspect]
     Indication: DEPRESSION
     Dosage: 60 MG, DAILY (1/D), ORAL
     Route: 048
     Dates: start: 20060101, end: 20061015
  2. WELLBUTRIN [Concomitant]

REACTIONS (3)
  - DIPLOPIA [None]
  - MYOPIA [None]
  - VISION BLURRED [None]
